FAERS Safety Report 15953018 (Version 12)
Quarter: 2019Q4

REPORT INFORMATION
  Report Type: Report from Study
  Country: US (occurrence: US)
  Receive Date: 20190211
  Receipt Date: 20191127
  Transmission Date: 20200122
  Serious: Yes (Death, Hospitalization)
  Sender: FDA-Public Use
  Company Number: US-ROCHE-2259250

PATIENT
  Age: 76 Year
  Sex: Male
  Weight: 81.4 kg

DRUGS (9)
  1. PREDNISONE. [Suspect]
     Active Substance: PREDNISONE
     Indication: MARGINAL ZONE LYMPHOMA
     Dosage: ON 24/JAN/2019 LAST DOSE OF PREDNISOLINE?ON 21/FEB/2019 MOST RECNT DOSE OF PREDNISONE
     Route: 048
     Dates: start: 20190118
  2. LENALIDOMIDE [Suspect]
     Active Substance: LENALIDOMIDE
     Indication: MARGINAL ZONE LYMPHOMA
     Dosage: ON 31/JAN/2019 LAST DOE OF LENALIDOMIDE?ON 26/FEB/2019 MOST RECNT DOSE OF LENALIDOMIDE?ON 28/FEB/201
     Route: 048
     Dates: start: 20190118
  3. VENETOCLAX. [Suspect]
     Active Substance: VENETOCLAX
     Route: 048
     Dates: start: 20190123, end: 20190125
  4. VENETOCLAX. [Suspect]
     Active Substance: VENETOCLAX
     Route: 048
     Dates: start: 20190129, end: 20190131
  5. VENETOCLAX. [Suspect]
     Active Substance: VENETOCLAX
     Indication: MARGINAL ZONE LYMPHOMA
     Dosage: ON 22/JAN/2019 MOST RECENT DOSE OF VENETOCLAX?ON 31/JAN/2019 MOST RECENT DOSE OF VENETOCLAX?ON 28/FE
     Route: 048
     Dates: start: 20190119
  6. OBINUTUZUMAB. [Suspect]
     Active Substance: OBINUTUZUMAB
     Indication: MARGINAL ZONE LYMPHOMA
     Dosage: ON 19/JAN/2019 LAST DOSE OF OBINUTUZUMAB?ON 16/FEB/2019 MOST RECENT DOSE OF OBINUTUZUMAB
     Route: 042
     Dates: start: 20190118
  7. PREDNISONE. [Suspect]
     Active Substance: PREDNISONE
     Dosage: 6 CYCLE AS R-CHOP
     Route: 065
     Dates: end: 20150810
  8. IBRUTINIB [Suspect]
     Active Substance: IBRUTINIB
     Indication: MARGINAL ZONE LYMPHOMA
     Dosage: ON 31/JAN/2019 MOST RECENT DOE OF IBRUTINIB
     Route: 048
     Dates: start: 20190118, end: 20190119
  9. VENETOCLAX. [Suspect]
     Active Substance: VENETOCLAX
     Route: 048
     Dates: start: 20190126, end: 20190128

REACTIONS (7)
  - Conduction disorder [Recovered/Resolved]
  - Hypotension [Recovered/Resolved]
  - Rash maculo-papular [Recovered/Resolved]
  - Syncope [Recovered/Resolved]
  - Atrial flutter [Recovered/Resolved]
  - Pyrexia [Recovered/Resolved]
  - Hypotension [Recovered/Resolved]

NARRATIVE: CASE EVENT DATE: 20190201
